FAERS Safety Report 9897687 (Version 2)
Quarter: 2014Q2

REPORT INFORMATION
  Report Type: Spontaneous
  Country: US (occurrence: US)
  Receive Date: 20140214
  Receipt Date: 20140408
  Transmission Date: 20141212
  Serious: Yes (Death, Life-Threatening, Hospitalization, Other)
  Sender: FDA-Public Use
  Company Number: US-009507513-1402USA004405

PATIENT
  Sex: Male
  Weight: 113.38 kg

DRUGS (3)
  1. JANUVIA [Suspect]
     Indication: TYPE 2 DIABETES MELLITUS
     Dosage: 100 MG, QD
     Route: 048
     Dates: start: 20080109, end: 20110825
  2. ACTOS [Concomitant]
     Indication: TYPE 2 DIABETES MELLITUS
     Dosage: UNK
  3. METFORMIN [Concomitant]
     Indication: TYPE 2 DIABETES MELLITUS

REACTIONS (32)
  - Pancreatic carcinoma metastatic [Fatal]
  - Dialysis [Unknown]
  - Hepatic cancer [Unknown]
  - Gynaecomastia [Unknown]
  - Colon cancer [Unknown]
  - Lung neoplasm malignant [Unknown]
  - Cerebrovascular accident [Unknown]
  - Metastases to spleen [Unknown]
  - Renal failure [Unknown]
  - Renal failure acute [Unknown]
  - Pancreatitis [Unknown]
  - Fall [Unknown]
  - Knee operation [Unknown]
  - Oedema peripheral [Unknown]
  - Peripheral venous disease [Unknown]
  - Hypokalaemia [Unknown]
  - Gait disturbance [Unknown]
  - Pleural effusion [Unknown]
  - Atrial fibrillation [Unknown]
  - Pericardial effusion [Unknown]
  - Central nervous system lesion [Unknown]
  - Hypophagia [Unknown]
  - Weight decreased [Unknown]
  - Hypertension [Unknown]
  - Anaemia [Unknown]
  - Renal cyst [Unknown]
  - Chronic gastritis [Not Recovered/Not Resolved]
  - Confusional state [Unknown]
  - Dizziness [Unknown]
  - Nausea [Unknown]
  - Vomiting [Unknown]
  - Diarrhoea [Unknown]
